FAERS Safety Report 6857226-7 (Version None)
Quarter: 2010Q3

REPORT INFORMATION
  Report Type: 
  Country: None (occurrence: None)
  Receive Date: 20100719
  Receipt Date: 20100705
  Transmission Date: 20110219
  Serious: Yes (Other)
  Sender: FDA-Public Use
  Company Number: FR-BAXTER-2010BH018170

PATIENT
  Age: 59 Year
  Sex: Male

DRUGS (8)
  1. HOLOXAN BAXTER [Suspect]
     Indication: LYMPHOMA
     Route: 042
     Dates: start: 20100520, end: 20100520
  2. UROMITEXAN BAXTER [Suspect]
     Indication: LYMPHOMA
     Route: 042
     Dates: start: 20100520, end: 20100520
  3. ETOPOSIDE GENERIC [Suspect]
     Indication: LYMPHOMA
     Route: 042
     Dates: start: 20100519
  4. ETOPOSIDE GENERIC [Suspect]
     Route: 065
     Dates: start: 20100615
  5. RITUXIMAB [Suspect]
     Indication: LYMPHOMA
     Route: 042
     Dates: start: 20100519
  6. RITUXIMAB [Suspect]
     Route: 065
     Dates: start: 20100615
  7. CARBOPLATIN [Suspect]
     Indication: LYMPHOMA
     Route: 042
     Dates: start: 20100519
  8. CARBOPLATIN [Suspect]
     Route: 065
     Dates: start: 20100615

REACTIONS (1)
  - ANGIOEDEMA [None]
